FAERS Safety Report 6856521-5 (Version None)
Quarter: 2010Q3

REPORT INFORMATION
  Report Type: 
  Country: None (occurrence: None)
  Receive Date: 20100719
  Receipt Date: 20100707
  Transmission Date: 20110219
  Serious: Yes (Hospitalization)
  Sender: FDA-Public Use
  Company Number: GR-ROCHE-714039

PATIENT
  Sex: Male
  Weight: 64 kg

DRUGS (2)
  1. INTERFERON ALFA-2A [Suspect]
     Indication: METASTATIC RENAL CELL CARCINOMA
     Dosage: DOSAGE FORM: SUBCUTANEOUS INJECTION, DOSE: 3 MILLION IU,  DOSE PRIOR TO SAE: 05 JUL 2010, INTERFERON
     Route: 030
     Dates: start: 20091109, end: 20100706
  2. BEVACIZUMAB [Suspect]
     Indication: METASTATIC RENAL CELL CARCINOMA
     Dosage: FORM: INTRAVENOUS SOLUTION.  DATE OF LAST DOSE PRIOR TO SAE: 05 JULY 2010
     Route: 042
     Dates: start: 20091109

REACTIONS (1)
  - HYPONATRAEMIA [None]
